FAERS Safety Report 5883906-6 (Version None)
Quarter: 2008Q3

REPORT INFORMATION
  Report Type: 
  Country: None (occurrence: None)
  Receive Date: 20080915
  Receipt Date: 20080915
  Transmission Date: 20090109
  Serious: Yes (Hospitalization)
  Sender: FDA-Public Use
  Company Number: B0460698A

PATIENT
  Age: 79 Year

DRUGS (1)
  1. DIGOXIN [Suspect]
     Dosage: 30MG UNKNOWN
     Route: 065

REACTIONS (5)
  - COMA [None]
  - HAEMODYNAMIC INSTABILITY [None]
  - NODAL RHYTHM [None]
  - RENAL FAILURE ACUTE [None]
  - THERAPEUTIC AGENT TOXICITY [None]
